FAERS Safety Report 24055395 (Version 1)
Quarter: 2024Q3

REPORT INFORMATION
  Report Type: Report from Study
  Country: CA (occurrence: CA)
  Receive Date: 20240705
  Receipt Date: 20240705
  Transmission Date: 20241016
  Serious: Yes (Death)
  Sender: BAYER
  Company Number: CA-BAYER-2024A096193

PATIENT
  Age: 43 Year
  Sex: Female

DRUGS (10)
  1. NAPROXEN [Suspect]
     Active Substance: NAPROXEN
     Dosage: UNK
  2. LORAZEPAM [Suspect]
     Active Substance: LORAZEPAM
  3. TEMAZEPAM [Suspect]
     Active Substance: TEMAZEPAM
  4. METHAMPHETAMINE [Suspect]
     Active Substance: METHAMPHETAMINE
  5. CYCLOBENZAPRINE [Suspect]
     Active Substance: CYCLOBENZAPRINE
  6. QUETIAPINE [Suspect]
     Active Substance: QUETIAPINE
  7. SERTRALINE [Suspect]
     Active Substance: SERTRALINE HYDROCHLORIDE
  8. PREGABALIN [Suspect]
     Active Substance: PREGABALIN
  9. METHADONE [Suspect]
     Active Substance: METHADONE HYDROCHLORIDE
  10. ACETAMINOPHEN [Suspect]
     Active Substance: ACETAMINOPHEN

REACTIONS (2)
  - Aspiration [Fatal]
  - Accidental overdose [Fatal]
